FAERS Safety Report 6589019-2 (Version None)
Quarter: 2010Q1

REPORT INFORMATION
  Report Type: 
  Country: None (occurrence: None)
  Receive Date: 20100218
  Receipt Date: 20091002
  Transmission Date: 20100710
  Serious: No
  Sender: FDA-Public Use
  Company Number: US-BRISTOL-MYERS SQUIBB COMPANY-14804827

PATIENT
  Age: 48 Year
  Sex: Female
  Weight: 55 kg

DRUGS (1)
  1. CEFZIL [Suspect]
     Indication: STAPHYLOCOCCAL INFECTION
     Dosage: 3.5DAYS
     Dates: start: 20090418

REACTIONS (1)
  - RASH [None]
